FAERS Safety Report 7959294-8 (Version None)
Quarter: 2011Q4

REPORT INFORMATION
  Report Type: 
  Country: None (occurrence: None)
  Receive Date: 20111130
  Receipt Date: 20111122
  Transmission Date: 20120403
  Serious: Yes (Hospitalization, Other)
  Sender: FDA-Public Use
  Company Number: AUR-APL-2011-05948

PATIENT
  Age: 65 Year
  Sex: Female

DRUGS (4)
  1. HYDROXYCUT (HYDROXYCUT) [Suspect]
     Indication: WEIGHT LOSS DIET
  2. CITALOPRAM HYDROBROMIDE [Suspect]
     Indication: DEPRESSION
     Dosage: 20 MG, 1 D
  3. LISINOPRIL [Concomitant]
  4. SIMVASTATIN [Concomitant]

REACTIONS (9)
  - LOW DENSITY LIPOPROTEIN INCREASED [None]
  - CEREBRAL INFARCTION [None]
  - CEREBRAL VASOCONSTRICTION [None]
  - MIGRAINE [None]
  - HEADACHE [None]
  - ISCHAEMIC STROKE [None]
  - HYPERTENSION [None]
  - BLOOD CHOLESTEROL INCREASED [None]
  - HYPOTENSION [None]
